FAERS Safety Report 18841444 (Version 1)
Quarter: 2021Q1

REPORT INFORMATION
  Report Type: Report from Study
  Country: US (occurrence: US)
  Receive Date: 20210203
  Receipt Date: 20210203
  Transmission Date: 20210419
  Serious: Yes (Hospitalization)
  Sender: FDA-Public Use
  Company Number: NVSC2021US017341

PATIENT
  Sex: Female

DRUGS (1)
  1. ADAKVEO [Suspect]
     Active Substance: CRIZANLIZUMAB-TMCA
     Indication: PRODUCT USED FOR UNKNOWN INDICATION
     Dosage: 10 MG, QMO (10M\ML)
     Route: 042
     Dates: start: 20200616, end: 20200924

REACTIONS (6)
  - Dyspnoea [Unknown]
  - Eye swelling [Unknown]
  - Aphonia [Unknown]
  - Pneumonia [Unknown]
  - Peripheral swelling [Unknown]
  - Road traffic accident [Unknown]

NARRATIVE: CASE EVENT DATE: 2020
